FAERS Safety Report 24344127 (Version 1)
Quarter: 2024Q3

REPORT INFORMATION
  Report Type: Spontaneous
  Country: US (occurrence: US)
  Receive Date: 20240920
  Receipt Date: 20240920
  Transmission Date: 20241017
  Serious: No
  Sender: BAYER
  Company Number: US-BAYER-2024A130422

PATIENT
  Age: 33 Year
  Sex: Female

DRUGS (2)
  1. ALEVE [Suspect]
     Active Substance: NAPROXEN SODIUM
     Indication: Chills
  2. ALEVE [Suspect]
     Active Substance: NAPROXEN SODIUM
     Indication: Pyrexia

REACTIONS (2)
  - Product use in unapproved indication [Unknown]
  - Somnolence [Unknown]
